FAERS Safety Report 14669825 (Version 1)
Quarter: 2018Q1

REPORT INFORMATION
  Report Type: Spontaneous
  Country: None (occurrence: ES)
  Receive Date: 20180322
  Receipt Date: 20180322
  Transmission Date: 20180509
  Serious: No
  Sender: FDA-Public Use
  Company Number: ES-GALEN LIMITED-AE-2017-0616

PATIENT
  Age: 51 Year
  Sex: Male

DRUGS (1)
  1. ADASUVE [Suspect]
     Active Substance: LOXAPINE
     Indication: AGITATION
     Route: 055
     Dates: start: 20161031, end: 20161031

REACTIONS (6)
  - Hypoventilation [None]
  - White blood cell count increased [None]
  - Bronchospasm [Recovered/Resolved]
  - Granulocyte count increased [None]
  - Mean cell haemoglobin decreased [None]
  - Lymphocyte percentage decreased [None]

NARRATIVE: CASE EVENT DATE: 20161031
